FAERS Safety Report 24264052 (Version 1)
Quarter: 2024Q3

REPORT INFORMATION
  Report Type: Spontaneous
  Country: US (occurrence: US)
  Receive Date: 20240829
  Receipt Date: 20240829
  Transmission Date: 20241017
  Serious: No
  Sender: AAVIS PHARMACEUTICALS
  Company Number: US-AVS-000014

PATIENT
  Sex: Female

DRUGS (1)
  1. BUTALBITAL, ACETAMINOPHEN, AND CAFFEINE [Suspect]
     Active Substance: ACETAMINOPHEN\BUTALBITAL\CAFFEINE
     Indication: Product used for unknown indication
     Route: 065

REACTIONS (3)
  - Feeling abnormal [Unknown]
  - Product colour issue [Unknown]
  - Product dosage form issue [Unknown]

NARRATIVE: CASE EVENT DATE: 20240101
